FAERS Safety Report 7313614-6 (Version None)
Quarter: 2011Q1

REPORT INFORMATION
  Report Type: 
  Country: None (occurrence: None)
  Receive Date: 20110223
  Receipt Date: 20110223
  Transmission Date: 20110831
  Serious: Yes (Life-Threatening, Hospitalization, Disabling, Other)
  Sender: FDA-Public Use
  Company Number: None

PATIENT
  Sex: Male
  Weight: 99.7913 kg

DRUGS (2)
  1. TRIAD ALCOHOL PREP PADS [Suspect]
  2. TOPCARE TOPICAL PREP PADS [Suspect]
     Indication: BLOOD GLUCOSE ABNORMAL
     Dosage: TWICE A DAY FINGERS
     Dates: end: 20110106

REACTIONS (3)
  - CYSTITIS [None]
  - POST HERPETIC NEURALGIA [None]
  - NERVE INJURY [None]
